FAERS Safety Report 8321528-8 (Version None)
Quarter: 2012Q2

REPORT INFORMATION
  Report Type: 
  Country: None (occurrence: None)
  Receive Date: 20120430
  Receipt Date: 20120418
  Transmission Date: 20120825
  Serious: No
  Sender: FDA-Public Use
  Company Number: US-BAYER-2012-039392

PATIENT
  Age: 65 Year
  Sex: Female
  Weight: 100 kg

DRUGS (2)
  1. NAPROXEN SODIUM [Suspect]
     Indication: OEDEMA PERIPHERAL
     Route: 048
  2. LIPITOR [Concomitant]
     Indication: OEDEMA PERIPHERAL
     Route: 048

REACTIONS (1)
  - NO ADVERSE EVENT [None]
